FAERS Safety Report 13624771 (Version 1)
Quarter: 2017Q2

REPORT INFORMATION
  Report Type: Spontaneous
  Country: GB (occurrence: GB)
  Receive Date: 20170607
  Receipt Date: 20170607
  Transmission Date: 20170830
  Serious: Yes (Death, Life-Threatening, Other)
  Sender: FDA-Public Use
  Company Number: GB-PFIZER INC-2016020216

PATIENT
  Age: 73 Year
  Sex: Female
  Weight: 64 kg

DRUGS (8)
  1. ACYCLOVIR. [Concomitant]
     Active Substance: ACYCLOVIR
     Dosage: UNK
  2. CYTARABINE. [Suspect]
     Active Substance: CYTARABINE
     Indication: ACUTE MYELOID LEUKAEMIA
     Dosage: 40 MG, SINGLE
     Route: 042
     Dates: start: 20151212, end: 20151212
  3. LITHIUM CARBONATE. [Concomitant]
     Active Substance: LITHIUM CARBONATE
     Dosage: UNK
  4. LEVOTHYROXINE. [Concomitant]
     Active Substance: LEVOTHYROXINE
     Dosage: UNK
  5. FLUCONAZOLE. [Concomitant]
     Active Substance: FLUCONAZOLE
     Dosage: UNK
  6. LACTULOSE. [Concomitant]
     Active Substance: LACTULOSE
     Dosage: UNK
  7. DOMPERIDONE [Concomitant]
     Active Substance: DOMPERIDONE
     Dosage: UNK
  8. PRIADEL [Concomitant]
     Active Substance: LITHIUM CARBONATE
     Dosage: UNK

REACTIONS (9)
  - Myocardial ischaemia [Fatal]
  - Disease progression [Fatal]
  - Acute myeloid leukaemia [Fatal]
  - Respiratory arrest [Not Recovered/Not Resolved]
  - Cardiac arrest [Not Recovered/Not Resolved]
  - Nausea [Not Recovered/Not Resolved]
  - Diarrhoea [Not Recovered/Not Resolved]
  - Pulmonary haemorrhage [Fatal]
  - Vomiting [Not Recovered/Not Resolved]

NARRATIVE: CASE EVENT DATE: 20151212
